FAERS Safety Report 6582478-0 (Version None)
Quarter: 2010Q1

REPORT INFORMATION
  Report Type: 
  Country: None (occurrence: None)
  Receive Date: 20100216
  Receipt Date: 20100209
  Transmission Date: 20100710
  Serious: Yes (Death, Hospitalization, Other)
  Sender: FDA-Public Use
  Company Number: PHEH2010US01895

PATIENT
  Sex: Male
  Weight: 90 kg

DRUGS (12)
  1. EXJADE [Suspect]
     Dosage: 1000 MG DAILY
     Route: 048
  2. ALBUTEROL [Concomitant]
     Dosage: 2 PUFFS Q 4 HOURS PRN
  3. ZYRTEC [Concomitant]
     Dosage: 10 MG, QD
  4. COLACE [Concomitant]
     Dosage: 100 MG, QD
  5. FLOVENT [Concomitant]
     Dosage: ONE PUFF BID
  6. POTASSIUM [Concomitant]
     Dosage: 20 MEQ, BID
  7. MAGNESIUM OXIDE [Concomitant]
     Dosage: 800 MG, QD
  8. LASIX [Concomitant]
     Dosage: 120 MG, QD
  9. FOLIC ACID [Concomitant]
     Dosage: 1 MG, QD
  10. SENNA [Concomitant]
     Dosage: 8.6 MG, BID
  11. NORTRIPTYLINE HCL [Concomitant]
     Dosage: 150 MG, QHS
  12. DILAUDID [Concomitant]
     Dosage: 2-4 MG PRN Q 4-6 HRS

REACTIONS (43)
  - ABDOMINAL DISTENSION [None]
  - ACUTE RESPIRATORY DISTRESS SYNDROME [None]
  - ANAEMIA [None]
  - AORTIC ARTERIOSCLEROSIS [None]
  - ARTERIOSCLEROSIS [None]
  - ARTERIOSCLEROSIS CORONARY ARTERY [None]
  - BLADDER DISORDER [None]
  - BODY TEMPERATURE DECREASED [None]
  - CARDIAC FAILURE CONGESTIVE [None]
  - CHLOROMA [None]
  - CHRONIC OBSTRUCTIVE PULMONARY DISEASE [None]
  - CONJUNCTIVAL PALLOR [None]
  - CONSTIPATION [None]
  - DIABETES MELLITUS [None]
  - DISEASE PROGRESSION [None]
  - DIZZINESS [None]
  - DRUG ABUSE [None]
  - DYSPNOEA [None]
  - EMPHYSEMA [None]
  - EYELID DISORDER [None]
  - EYELID OEDEMA [None]
  - FATIGUE [None]
  - GASTROINTESTINAL HAEMORRHAGE [None]
  - HEART RATE INCREASED [None]
  - HEPATIC CIRRHOSIS [None]
  - HYPOXIC ENCEPHALOPATHY [None]
  - LYMPHADENOPATHY [None]
  - MENTAL STATUS CHANGES [None]
  - METASTASIS [None]
  - MYELOFIBROSIS [None]
  - NAUSEA [None]
  - OEDEMA PERIPHERAL [None]
  - OESOPHAGEAL ULCER [None]
  - PLATELET COUNT DECREASED [None]
  - PLEURAL EFFUSION [None]
  - POLYP [None]
  - PULMONARY CONGESTION [None]
  - PULMONARY OEDEMA [None]
  - PYREXIA [None]
  - SCAR [None]
  - SEPSIS [None]
  - STAPHYLOCOCCAL INFECTION [None]
  - WOUND INFECTION STAPHYLOCOCCAL [None]
